FAERS Safety Report 9231427 (Version 1)
Quarter: 2013Q2

REPORT INFORMATION
  Report Type: Report from Study
  Country: FR (occurrence: FR)
  Receive Date: 20130415
  Receipt Date: 20130415
  Transmission Date: 20140414
  Serious: Yes (Death, Other)
  Sender: FDA-Public Use
  Company Number: PHHO2013FR005112

PATIENT
  Age: 76 Year
  Sex: Male

DRUGS (2)
  1. AFINITOR [Suspect]
     Indication: TRANSITIONAL CELL CARCINOMA
     Dosage: 10 MG, DAY
     Route: 048
     Dates: start: 20120706, end: 20120731
  2. AFINITOR [Suspect]
     Dosage: 10 MG, DAY
     Route: 048
     Dates: start: 20120813

REACTIONS (2)
  - Death [Fatal]
  - Lymphocyte count decreased [Not Recovered/Not Resolved]
